FAERS Safety Report 11786572 (Version 1)
Quarter: 2015Q4

REPORT INFORMATION
  Report Type: Spontaneous
  Country: GB (occurrence: GB)
  Receive Date: 20151130
  Receipt Date: 20151130
  Transmission Date: 20160305
  Serious: No
  Sender: FDA-Public Use
  Company Number: GB-JNJFOC-20151120143

PATIENT
  Sex: Female

DRUGS (1)
  1. SIMPONI [Suspect]
     Active Substance: GOLIMUMAB
     Indication: PRODUCT USED FOR UNKNOWN INDICATION
     Route: 058

REACTIONS (6)
  - Melanocytic naevus [Unknown]
  - Skin neoplasm bleeding [Unknown]
  - Nasal ulcer [Unknown]
  - Condition aggravated [Unknown]
  - Mouth ulceration [Unknown]
  - Pain [Unknown]
